FAERS Safety Report 7753203-2 (Version None)
Quarter: 2011Q3

REPORT INFORMATION
  Report Type: 
  Country: None (occurrence: None)
  Receive Date: 20110915
  Receipt Date: 20110909
  Transmission Date: 20111222
  Serious: Yes (Other)
  Sender: FDA-Public Use
  Company Number: PHHY2011CH45043

PATIENT
  Age: 69 Year
  Sex: Male

DRUGS (4)
  1. RITALIN [Suspect]
     Indication: DEPRESSION
     Dosage: 20 TO 40 MG DAILY DOSE
  2. REMERON [Concomitant]
     Indication: DEPRESSION
     Dosage: UNK UKN, UNK
  3. RITALIN [Suspect]
     Dosage: 200 MG, QD
  4. LEXOTANIL [Concomitant]
     Indication: DEPRESSION
     Dosage: 9 MG, QD

REACTIONS (2)
  - INTENTIONAL DRUG MISUSE [None]
  - SLEEP DISORDER [None]
